FAERS Safety Report 4843532-4 (Version None)
Quarter: 2005Q4

REPORT INFORMATION
  Report Type: 
  Country: None (occurrence: None)
  Receive Date: 20051125
  Receipt Date: 20051115
  Transmission Date: 20060501
  Serious: Yes (Other)
  Sender: FDA-Public Use
  Company Number: HQWYE579516NOV05

PATIENT
  Age: 20 Year
  Sex: Male
  Weight: 72.64 kg

DRUGS (2)
  1. EFFEXOR XR [Suspect]
     Indication: BIPOLAR DISORDER
     Dosage: ORAL
     Route: 048
     Dates: start: 20051101
  2. ALCOHOL (ETHANOL, ) [Suspect]
     Dosage: ORAL
     Route: 048

REACTIONS (2)
  - ALCOHOL INTERACTION [None]
  - SUICIDAL IDEATION [None]
